FAERS Safety Report 13669326 (Version 1)
Quarter: 2017Q2

REPORT INFORMATION
  Report Type: Spontaneous
  Country: DE (occurrence: DE)
  Receive Date: 20170620
  Receipt Date: 20170620
  Transmission Date: 20170830
  Serious: Yes (Life-Threatening, Hospitalization, Other)
  Sender: FDA-Public Use
  Company Number: DE-SHIRE-DE201713392

PATIENT
  Age: 83 Year
  Sex: Female
  Weight: 60 kg

DRUGS (7)
  1. C1 INHIBITOR (HUMAN) [Suspect]
     Active Substance: HUMAN C1-ESTERASE INHIBITOR
     Indication: SWOLLEN TONGUE
     Dosage: 1500 UNITS, UNKNOWN
     Route: 042
  2. SAXAGLIPTIN [Suspect]
     Active Substance: SAXAGLIPTIN
     Indication: TYPE 2 DIABETES MELLITUS
     Dosage: 5 MG, UNKNOWN
     Route: 065
  3. RAMIPRIL. [Suspect]
     Active Substance: RAMIPRIL
     Indication: HYPERTENSION
     Dosage: 5 MG, UNKNOWN
     Route: 065
  4. C1 INHIBITOR (HUMAN) [Suspect]
     Active Substance: HUMAN C1-ESTERASE INHIBITOR
     Indication: ANGIOEDEMA
  5. RAMIPRIL. [Suspect]
     Active Substance: RAMIPRIL
     Indication: CORONARY ARTERY DISEASE
  6. ICATIBANT [Suspect]
     Active Substance: ICATIBANT ACETATE
     Indication: ANGIOEDEMA
  7. ICATIBANT [Suspect]
     Active Substance: ICATIBANT ACETATE
     Indication: SWOLLEN TONGUE
     Dosage: 30 MG, UNKNOWN
     Route: 058

REACTIONS (5)
  - Drug ineffective [Unknown]
  - Swollen tongue [Recovered/Resolved]
  - Condition aggravated [Recovered/Resolved]
  - Angioedema [Recovered/Resolved]
  - Off label use [Unknown]
